FAERS Safety Report 8042059-9 (Version None)
Quarter: 2011Q4

REPORT INFORMATION
  Report Type: 
  Country: None (occurrence: None)
  Receive Date: 20111206
  Receipt Date: 20110613
  Transmission Date: 20120403
  Serious: Yes (Other)
  Sender: FDA-Public Use
  Company Number: ABR_00138_2011

PATIENT
  Sex: Male

DRUGS (2)
  1. NITROGLYCERIN [Suspect]
     Indication: ANGINA PECTORIS
     Dosage: (DF [1 PUMP WITH NO EFFECT; USED 3 MORE PUMPS])
     Dates: end: 20110601
  2. METFORMIN (UNKNOWN UNTIL CONTINUING) [Concomitant]

REACTIONS (2)
  - PRODUCT CONTAINER ISSUE [None]
  - DRUG INEFFECTIVE [None]
